FAERS Safety Report 16131076 (Version 6)
Quarter: 2019Q4

REPORT INFORMATION
  Report Type: Report from Study
  Country: US (occurrence: US)
  Receive Date: 20190328
  Receipt Date: 20191021
  Transmission Date: 20200122
  Serious: Yes (Other)
  Sender: FDA-Public Use
  Company Number: PHHY2018US201312

PATIENT
  Age: 12 Year
  Sex: Female

DRUGS (3)
  1. CYCLOPHOSPHAMIDE. [Concomitant]
     Active Substance: CYCLOPHOSPHAMIDE
     Indication: CHEMOTHERAPY
     Dosage: UNK
     Route: 065
  2. KYMRIAH [Suspect]
     Active Substance: TISAGENLECLEUCEL
     Indication: B-CELL TYPE ACUTE LEUKAEMIA
     Dosage: ONCE/SINGLE
     Route: 041
     Dates: start: 2018
  3. FLUDARABINE [Concomitant]
     Active Substance: FLUDARABINE PHOSPHATE
     Indication: CHEMOTHERAPY
     Route: 065

REACTIONS (10)
  - Neurotoxicity [Recovered/Resolved]
  - Hypogammaglobulinaemia [Unknown]
  - Gait disturbance [Unknown]
  - Respirovirus test positive [Unknown]
  - Aphasia [Unknown]
  - Lymphocyte count decreased [Recovered/Resolved]
  - Fall [Unknown]
  - Cytokine release syndrome [Unknown]
  - Neutropenia [Unknown]
  - Clumsiness [Unknown]
